FAERS Safety Report 11020697 (Version 1)
Quarter: 2015Q2

REPORT INFORMATION
  Report Type: Report from Study
  Country: AT (occurrence: AT)
  Receive Date: 20150413
  Receipt Date: 20150413
  Transmission Date: 20150821
  Serious: Yes (Death, Other)
  Sender: FDA-Public Use
  Company Number: AT-ROCHE-1138933

PATIENT

DRUGS (9)
  1. GANCICLOVIR. [Suspect]
     Active Substance: GANCICLOVIR
     Indication: ANTIVIRAL PROPHYLAXIS
     Route: 042
  2. TACROLIMUS. [Suspect]
     Active Substance: TACROLIMUS
     Indication: PROPHYLAXIS AGAINST TRANSPLANT REJECTION
     Dosage: IN GROUP A  TACROLIMUS (TARGET TROUGH LEVEL 10-12 NG/ML FIRST 3 MONTHS, 8-10 NG/ML MONTHS 4-24) AND
     Route: 065
  3. ALEMTUZUMAB [Suspect]
     Active Substance: ALEMTUZUMAB
     Indication: PROPHYLAXIS AGAINST TRANSPLANT REJECTION
     Dosage: OVER 2 H JUST ONE TIME
     Route: 065
  4. PIPERACILLIN/TAZOBACTAM [Concomitant]
     Active Substance: PIPERACILLIN SODIUM\TAZOBACTAM SODIUM
     Indication: ANTIBIOTIC PROPHYLAXIS
     Route: 065
  5. ATG [Suspect]
     Active Substance: LAPINE T-LYMPHOCYTE IMMUNE GLOBULIN
     Indication: LUNG TRANSPLANT
     Dosage: INDUCTION ON DAYS 0-4 WITH A DOSAGE OF 5 MG/KG BODY WEIGHT (2MG /KG BODY WEIGHT ON DAYS 0, 1, 2, 3 A
     Route: 065
  6. AMPHOTERICIN B. [Concomitant]
     Active Substance: AMPHOTERICIN B
     Indication: ANTIFUNGAL PROPHYLAXIS
     Route: 065
  7. MYCOPHENOLATE MOFETIL. [Suspect]
     Active Substance: MYCOPHENOLATE MOFETIL
     Indication: PROPHYLAXIS AGAINST TRANSPLANT REJECTION
     Dosage: IN GR A (1.5 G/DAY) AND IN GR B 3 G/DAY
     Route: 065
  8. GANCICLOVIR. [Suspect]
     Active Substance: GANCICLOVIR
     Dosage: CONTINUED TILL END OF THE THIRD POSTOPERATIVE MONTH
     Route: 048
  9. VALGANCICLOVIR [Suspect]
     Active Substance: VALGANCICLOVIR
     Indication: ANTIVIRAL PROPHYLAXIS
     Route: 065

REACTIONS (10)
  - Sepsis [Fatal]
  - Psychotic disorder due to a general medical condition [Unknown]
  - Lung adenocarcinoma [Unknown]
  - Bacterial infection [Unknown]
  - Leukopenia [Unknown]
  - Wound infection [Unknown]
  - Aspergillus infection [Unknown]
  - Posterior reversible encephalopathy syndrome [Unknown]
  - Cytomegalovirus infection [Unknown]
  - Thrombotic microangiopathy [Unknown]
